FAERS Safety Report 9524846 (Version 1)
Quarter: 2013Q3

REPORT INFORMATION
  Report Type: Spontaneous
  Country: US (occurrence: None)
  Receive Date: 20130912
  Receipt Date: 20130912
  Transmission Date: 20140515
  Serious: Yes (Other)
  Sender: FDA-Public Use
  Company Number: None

PATIENT
  Age: 51 Year
  Sex: Female
  Weight: 84.37 kg

DRUGS (1)
  1. CLARITHROMYCIN [Suspect]
     Indication: SINUSITIS
     Dosage: 2 PILLS ONCE DAILY TAKEN BY MOUTH
     Dates: start: 20130906, end: 20130908

REACTIONS (3)
  - Dysgeusia [None]
  - Pain in extremity [None]
  - Insomnia [None]
